FAERS Safety Report 7165051-5 (Version None)
Quarter: 2010Q4

REPORT INFORMATION
  Report Type: 
  Country: None (occurrence: None)
  Receive Date: 20101215
  Receipt Date: 20091217
  Transmission Date: 20110411
  Serious: No
  Sender: FDA-Public Use
  Company Number: US-AMGEN-KDL381275

PATIENT

DRUGS (3)
  1. ENBREL [Suspect]
     Indication: RHEUMATOID ARTHRITIS
     Dosage: 50 MG, QWK
     Route: 058
     Dates: start: 20091119
  2. ENBREL [Suspect]
     Indication: SYSTEMIC LUPUS ERYTHEMATOSUS
  3. HYDROXYCHLOROQUINE SULFATE [Concomitant]
     Dosage: UNK UNK, UNK
     Dates: start: 20091119

REACTIONS (2)
  - INJECTION SITE HAEMATOMA [None]
  - INJECTION SITE INDURATION [None]
